FAERS Safety Report 10945456 (Version 1)
Quarter: 2015Q1

REPORT INFORMATION
  Report Type: Spontaneous
  Country: US (occurrence: None)
  Receive Date: 20150212
  Receipt Date: 20150212
  Transmission Date: 20150721
  Serious: Yes (Other)
  Sender: FDA-Public Use
  Company Number: 2014VID00092

PATIENT
  Age: 12 Month
  Sex: Male
  Weight: 9 kg

DRUGS (5)
  1. MOXIFLOXACIN [Concomitant]
     Active Substance: MOXIFLOXACIN
  2. MULTIVITAMIN [Concomitant]
     Active Substance: VITAMINS
  3. NYSTATIN TOPICAL [Concomitant]
  4. ACTIMMUNE [Suspect]
     Active Substance: INTERFERON GAMMA-1B
     Indication: CHRONIC GRANULOMATOUS DISEASE
     Route: 058
     Dates: start: 201409
  5. POSACONAZOLE [Concomitant]
     Active Substance: POSACONAZOLE

REACTIONS (4)
  - Neutrophil count decreased [None]
  - Aspartate aminotransferase increased [None]
  - Alanine aminotransferase increased [None]
  - White blood cell count decreased [None]
